FAERS Safety Report 12269047 (Version 1)
Quarter: 2016Q2

REPORT INFORMATION
  Report Type: Spontaneous
  Country: EE (occurrence: EE)
  Receive Date: 20160414
  Receipt Date: 20160414
  Transmission Date: 20160815
  Serious: Yes (Hospitalization, Other)
  Sender: FDA-Public Use
  Company Number: EE-BAYER-2016-065770

PATIENT
  Age: 31 Year
  Sex: Female

DRUGS (1)
  1. MIRENA [Suspect]
     Active Substance: LEVONORGESTREL
     Dosage: 20 MCG/24HR, CONT
     Route: 015
     Dates: start: 20150928, end: 20160404

REACTIONS (6)
  - Drug ineffective [None]
  - Salpingectomy [None]
  - Haematosalpinx [None]
  - Ectopic pregnancy with contraceptive device [None]
  - Hernia [None]
  - Abdominal pain lower [None]

NARRATIVE: CASE EVENT DATE: 20160404
